FAERS Safety Report 7298814-6 (Version None)
Quarter: 2011Q1

REPORT INFORMATION
  Report Type: 
  Country: None (occurrence: None)
  Receive Date: 20110217
  Receipt Date: 20110126
  Transmission Date: 20110831
  Serious: No
  Sender: FDA-Public Use
  Company Number: US-B.I. PHARMACEUTICALS,INC./RIDGEFIELD-2011-BP-02954BP

PATIENT
  Sex: Male

DRUGS (7)
  1. AMLODIPINE [Concomitant]
     Indication: HYPERTENSION
  2. BENAZEPRIL [Concomitant]
     Indication: HYPERTENSION
  3. SERTRALINE [Concomitant]
     Indication: ANXIETY
  4. ZOLPIDEM [Concomitant]
     Indication: SLEEP DISORDER
  5. ADVAIR [Concomitant]
     Indication: CHRONIC OBSTRUCTIVE PULMONARY DISEASE
  6. LORAZEPAM [Concomitant]
     Indication: ANXIETY
  7. SPIRIVA [Suspect]
     Indication: CHRONIC OBSTRUCTIVE PULMONARY DISEASE
     Dosage: 18 MCG
     Route: 055
     Dates: start: 20090101

REACTIONS (3)
  - DRUG INEFFECTIVE [None]
  - PERIPHERAL ARTERIAL OCCLUSIVE DISEASE [None]
  - PNEUMONIA [None]
